FAERS Safety Report 18297671 (Version 1)
Quarter: 2020Q3

REPORT INFORMATION
  Report Type: Spontaneous
  Country: FR (occurrence: FR)
  Receive Date: 20200922
  Receipt Date: 20200922
  Transmission Date: 20201103
  Serious: Yes (Other)
  Sender: FDA-Public Use
  Company Number: FR-JNJFOC-20200925162

PATIENT
  Age: 70 Year
  Sex: Female

DRUGS (1)
  1. STELARA [Suspect]
     Active Substance: USTEKINUMAB
     Indication: PRODUCT USED FOR UNKNOWN INDICATION
     Dosage: SINCE 2 YEARS
     Route: 058
     Dates: start: 2018

REACTIONS (2)
  - Phlebitis [Unknown]
  - Foot fracture [Unknown]

NARRATIVE: CASE EVENT DATE: 2020
